FAERS Safety Report 6216496-9 (Version None)
Quarter: 2009Q2

REPORT INFORMATION
  Report Type: 
  Country: None (occurrence: None)
  Receive Date: 20090605
  Receipt Date: 20090527
  Transmission Date: 20091009
  Serious: Yes (Hospitalization, Other)
  Sender: FDA-Public Use
  Company Number: JP-MERCK-0905USA03287

PATIENT
  Age: 39 Year
  Sex: Female
  Weight: 63 kg

DRUGS (8)
  1. FOSAMAX [Suspect]
     Indication: OSTEOPOROSIS
     Route: 048
     Dates: start: 20080128, end: 20080303
  2. CRESTOR [Suspect]
     Indication: HYPERLIPIDAEMIA
     Route: 048
     Dates: start: 20080213, end: 20080303
  3. OMEPRAL [Concomitant]
     Indication: GASTRIC ULCER
     Route: 048
     Dates: start: 20070101, end: 20080303
  4. DEPAS [Concomitant]
     Indication: ANXIETY
     Route: 048
     Dates: start: 20070101, end: 20080303
  5. CELTECT [Concomitant]
     Indication: HYPERSENSITIVITY
     Route: 048
     Dates: start: 20070101, end: 20080303
  6. LOXONIN [Concomitant]
     Indication: ANALGESIA
     Route: 048
     Dates: start: 20070101, end: 20080303
  7. PREDNISOLONE [Concomitant]
     Indication: EOSINOPHILIC FASCIITIS
     Route: 048
     Dates: start: 20070101
  8. CRAVIT [Concomitant]
     Indication: CYSTITIS
     Route: 048
     Dates: start: 20080213, end: 20080218

REACTIONS (2)
  - LIVER DISORDER [None]
  - OPTIC NEURITIS [None]
